FAERS Safety Report 11539378 (Version 3)
Quarter: 2015Q4

REPORT INFORMATION
  Report Type: Spontaneous
  Country: BR (occurrence: BR)
  Receive Date: 20150923
  Receipt Date: 20151007
  Transmission Date: 20160304
  Serious: Yes (Hospitalization, Other)
  Sender: FDA-Public Use
  Company Number: BR-TORRENT-00003103

PATIENT
  Age: 32 Year
  Sex: Female
  Weight: 83 kg

DRUGS (3)
  1. ALPRAZOLAM. [Concomitant]
     Active Substance: ALPRAZOLAM
     Indication: SEDATIVE THERAPY
     Dosage: TWICE DAILY/ ORAL
     Route: 048
     Dates: start: 20140421, end: 20140527
  2. LAMITOR [Suspect]
     Active Substance: LAMOTRIGINE
     Indication: DEPRESSION
     Dosage: LAMITOR 100 MG TWICE DAILY/ORAL
     Route: 048
     Dates: start: 20140421, end: 20140530
  3. DULOXETINE. [Concomitant]
     Active Substance: DULOXETINE
     Indication: DEPRESSION
     Dosage: DOSE NUMBER IS UNKNOWN/ TWICE DAILY/ ORAL
     Route: 048
     Dates: start: 20140421, end: 20140527

REACTIONS (18)
  - Lacrimation increased [Recovered/Resolved]
  - Renal pain [Not Recovered/Not Resolved]
  - Constipation [Unknown]
  - Infection [Unknown]
  - Eye discharge [Recovered/Resolved]
  - Nasal congestion [Recovered/Resolved]
  - Oral pustule [Recovered/Resolved]
  - Haematochezia [Recovered/Resolved]
  - Stevens-Johnson syndrome [Recovered/Resolved with Sequelae]
  - Throat tightness [Recovered/Resolved]
  - Dyspnoea [Recovered/Resolved]
  - Blister [Recovered/Resolved]
  - Dry eye [Not Recovered/Not Resolved]
  - Off label use [Recovered/Resolved]
  - Eye pruritus [Not Recovered/Not Resolved]
  - Rash macular [Recovering/Resolving]
  - Vomiting [Recovered/Resolved]
  - Dysuria [Recovered/Resolved]

NARRATIVE: CASE EVENT DATE: 2014
